FAERS Safety Report 13708746 (Version 1)
Quarter: 2017Q2

REPORT INFORMATION
  Report Type: Spontaneous
  Country: US (occurrence: US)
  Receive Date: 20170630
  Receipt Date: 20170630
  Transmission Date: 20170830
  Serious: Yes (Hospitalization)
  Sender: FDA-Public Use
  Company Number: US-STALLERGENES SAS-2022813

PATIENT
  Age: 49 Year
  Sex: Male

DRUGS (19)
  1. PANTOPRAZOLE SODIUM. [Concomitant]
     Active Substance: PANTOPRAZOLE SODIUM
  2. DIVALPROEX SODIUM. [Concomitant]
     Active Substance: DIVALPROEX SODIUM
  3. LYRICA [Concomitant]
     Active Substance: PREGABALIN
  4. LINZESS [Concomitant]
     Active Substance: LINACLOTIDE
  5. LORATADINE. [Concomitant]
     Active Substance: LORATADINE
  6. ALLOPURINOL. [Concomitant]
     Active Substance: ALLOPURINOL
  7. RAMIPRIL. [Concomitant]
     Active Substance: RAMIPRIL
  8. DULOXETINE. [Concomitant]
     Active Substance: DULOXETINE
  9. ADVAIR HFA [Concomitant]
     Active Substance: FLUTICASONE PROPIONATE\SALMETEROL XINAFOATE
  10. METOCLOPRAMIDE. [Concomitant]
     Active Substance: METOCLOPRAMIDE
  11. ORALAIR [Suspect]
     Active Substance: ANTHOXANTHUM ODORATUM POLLEN\DACTYLIS GLOMERATA POLLEN\LOLIUM PERENNE POLLEN\PHLEUM PRATENSE POLLEN\POA PRATENSIS POLLEN
     Indication: ASTHMA
     Route: 060
     Dates: start: 20170428
  12. TROKENDI XR [Concomitant]
     Active Substance: TOPIRAMATE
  13. OXYCODONE AND ACETAMINOPHEN [Concomitant]
     Active Substance: ACETAMINOPHEN\OXYCODONE HYDROCHLORIDE
  14. CETIRIZINE [Concomitant]
     Active Substance: CETIRIZINE HYDROCHLORIDE
  15. DULERA [Concomitant]
     Active Substance: FORMOTEROL FUMARATE DIHYDRATE\MOMETASONE FUROATE
  16. TOPIRAMATE. [Concomitant]
     Active Substance: TOPIRAMATE
  17. DICYCLOMINE [Concomitant]
     Active Substance: DICYCLOMINE HYDROCHLORIDE
  18. BACLOFEN. [Concomitant]
     Active Substance: BACLOFEN
  19. ZOLPIDEM [Concomitant]
     Active Substance: ZOLPIDEM\ZOLPIDEM TARTRATE

REACTIONS (3)
  - Off label use [Unknown]
  - Pneumonia [Unknown]
  - Drug dose omission [Unknown]

NARRATIVE: CASE EVENT DATE: 20170428
